FAERS Safety Report 22091420 (Version 3)
Quarter: 2023Q2

REPORT INFORMATION
  Report Type: Spontaneous
  Country: PH (occurrence: PH)
  Receive Date: 20230314
  Receipt Date: 20230425
  Transmission Date: 20230722
  Serious: No
  Sender: FDA-Public Use
  Company Number: PH-TOLMAR, INC.-23PH039106

PATIENT

DRUGS (1)
  1. ELIGARD [Suspect]
     Active Substance: LEUPROLIDE ACETATE
     Indication: Product used for unknown indication
     Dosage: 22.5 MILLIGRAM

REACTIONS (5)
  - Wrong technique in product usage process [Unknown]
  - Product administration error [Unknown]
  - Incorrect dose administered [Unknown]
  - Device leakage [Unknown]
  - Syringe issue [Unknown]
